FAERS Safety Report 11177224 (Version 3)
Quarter: 2015Q3

REPORT INFORMATION
  Report Type: Spontaneous
  Country: IT (occurrence: IT)
  Receive Date: 20150610
  Receipt Date: 20150706
  Transmission Date: 20151125
  Serious: Yes (Other)
  Sender: FDA-Public Use
  Company Number: IT-PFIZER INC-2015193348

PATIENT
  Age: 35 Year
  Sex: Male

DRUGS (3)
  1. CISPLATIN. [Suspect]
     Active Substance: CISPLATIN
     Indication: EXTRAGONADAL PRIMARY GERM CELL TUMOUR
     Dosage: UNK, CYCLIC
     Route: 065
     Dates: start: 200506, end: 200510
  2. BLEOMYCIN [Suspect]
     Active Substance: BLEOMYCIN SULFATE
     Indication: EXTRAGONADAL PRIMARY GERM CELL TUMOUR
     Dosage: UNK, CYCLIC
     Dates: start: 200506, end: 200510
  3. ETOPOSIDE. [Suspect]
     Active Substance: ETOPOSIDE
     Indication: EXTRAGONADAL PRIMARY GERM CELL TUMOUR
     Dosage: UNK, CYCLIC
     Route: 065
     Dates: start: 200506, end: 200510

REACTIONS (2)
  - Thrombocytopenia [Unknown]
  - Leukopenia [Unknown]
